FAERS Safety Report 19657513 (Version 1)
Quarter: 2021Q3

REPORT INFORMATION
  Report Type: Other
  Country: IL (occurrence: IL)
  Receive Date: 20210804
  Receipt Date: 20210804
  Transmission Date: 20211014
  Serious: Yes (Life-Threatening, Hospitalization, Other)
  Sender: FDA-Public Use
  Company Number: IL-INVATECH-000109

PATIENT
  Age: 46 Year
  Sex: Female

DRUGS (4)
  1. LABETALOL [Suspect]
     Active Substance: LABETALOL\LABETALOL HYDROCHLORIDE
     Indication: HYPERTENSION
     Dosage: ORAL LABETALOL 200MG 3/DAY STARTED ON POD 1.
     Route: 048
  2. LOW MOLECULAR WEIGHT HEPARIN [Concomitant]
     Active Substance: UNSPECIFIED INGREDIENT
     Indication: THROMBOSIS PROPHYLAXIS
  3. PARACETAMOL [Concomitant]
     Active Substance: ACETAMINOPHEN
     Indication: AFTERBIRTH PAIN
  4. TRAMADEX [Concomitant]
     Active Substance: TRAMADOL
     Indication: AFTERBIRTH PAIN

REACTIONS (6)
  - Haemodynamic instability [Recovered/Resolved]
  - Condition aggravated [Recovered/Resolved]
  - Diastolic dysfunction [Unknown]
  - Pulmonary oedema [Recovered/Resolved]
  - Pulmonary hypertension [Recovered/Resolved]
  - Hypertensive crisis [Recovered/Resolved]
